FAERS Safety Report 14437792 (Version 1)
Quarter: 2018Q1

REPORT INFORMATION
  Report Type: Spontaneous
  Country: US (occurrence: US)
  Receive Date: 20180125
  Receipt Date: 20180125
  Transmission Date: 20180509
  Serious: No
  Sender: FDA-Public Use
  Company Number: US-ABBVIE-17K-163-1922220-00

PATIENT
  Age: 57 Year
  Sex: Male

DRUGS (2)
  1. HUMIRA [Suspect]
     Active Substance: ADALIMUMAB
     Route: 058
     Dates: start: 201703
  2. HUMIRA [Suspect]
     Active Substance: ADALIMUMAB
     Indication: PSORIASIS
     Dosage: DAY 1
     Route: 058
     Dates: start: 20170317, end: 20170317

REACTIONS (10)
  - Incorrect dose administered [Recovered/Resolved]
  - Deformity [Unknown]
  - Helplessness [Unknown]
  - Wrong technique in product usage process [Recovered/Resolved]
  - Pruritus [Unknown]
  - Frustration tolerance decreased [Unknown]
  - Anger [Unknown]
  - Drug effect decreased [Unknown]
  - Psoriasis [Unknown]
  - Emotional distress [Unknown]

NARRATIVE: CASE EVENT DATE: 201703
